FAERS Safety Report 8490875-1 (Version None)
Quarter: 2012Q3

REPORT INFORMATION
  Report Type: 
  Country: None (occurrence: None)
  Receive Date: 20120706
  Receipt Date: 20120625
  Transmission Date: 20120928
  Serious: Yes (Hospitalization, Other)
  Sender: FDA-Public Use
  Company Number: MX-NOVOPROD-352612

PATIENT
  Age: 41 Year
  Sex: Female
  Weight: 104.9 kg

DRUGS (2)
  1. VICTOZA [Suspect]
     Dosage: UNK MG, QD
     Route: 058
     Dates: end: 20120524
  2. VICTOZA [Suspect]
     Indication: OBESITY
     Dosage: 0.6 MG, QD
     Route: 058
     Dates: start: 20110815

REACTIONS (1)
  - CHOLELITHIASIS [None]
